FAERS Safety Report 8121435-X (Version None)
Quarter: 2012Q1

REPORT INFORMATION
  Report Type: 
  Country: None (occurrence: None)
  Receive Date: 20120208
  Receipt Date: 20120203
  Transmission Date: 20120608
  Serious: No
  Sender: FDA-Public Use
  Company Number: US-PFIZER INC-2012031679

PATIENT
  Sex: Female

DRUGS (3)
  1. EFFEXOR XR [Suspect]
     Dosage: UNK
     Dates: start: 20101020, end: 20111102
  2. PROTONIX [Concomitant]
     Dosage: UNK
     Dates: start: 20101020, end: 20111102
  3. RELPAX [Concomitant]
     Dosage: UNK
     Dates: start: 20101020, end: 20111102

REACTIONS (2)
  - ANXIETY [None]
  - FEELING ABNORMAL [None]
